FAERS Safety Report 4347170-1 (Version None)
Quarter: 2004Q1

REPORT INFORMATION
  Report Type: 
  Country: None (occurrence: None)
  Receive Date: 20040329
  Receipt Date: 20040210
  Transmission Date: 20041129
  Serious: No
  Sender: FDA-Public Use
  Company Number: USA031255509

PATIENT
  Age: 6 Year
  Sex: Female
  Weight: 20 kg

DRUGS (5)
  1. STRATTERA [Suspect]
     Indication: ATTENTION DEFICIT/HYPERACTIVITY DISORDER
     Dosage: 40 MG/DAY
     Dates: start: 20031223
  2. NASONEX [Concomitant]
  3. CLARITIN [Concomitant]
  4. COUGH SYRUP [Concomitant]
  5. ANTI-HISTAMINE TAB [Concomitant]

REACTIONS (4)
  - DRUG INEFFECTIVE [None]
  - HYPERSOMNIA [None]
  - PRESCRIBED OVERDOSE [None]
  - PSYCHOMOTOR HYPERACTIVITY [None]
